FAERS Safety Report 12446409 (Version 1)
Quarter: 2016Q2

REPORT INFORMATION
  Report Type: Spontaneous
  Country: FR (occurrence: FR)
  Receive Date: 20160608
  Receipt Date: 20160608
  Transmission Date: 20160815
  Serious: Yes (Hospitalization)
  Sender: FDA-Public Use
  Company Number: FR-ACCORD-041419

PATIENT

DRUGS (1)
  1. FLUOROURACIL ACCORD [Suspect]
     Active Substance: FLUOROURACIL
     Indication: PRODUCT USED FOR UNKNOWN INDICATION
     Dosage: DOSE 10 ML/H?STRENGTH 50 MG/ML??RECEIVED BY FOLFUSOR PORTABLE DIFFUSER (BATCH NO 15J040)
     Route: 042

REACTIONS (1)
  - Incorrect drug administration rate [Unknown]

NARRATIVE: CASE EVENT DATE: 20160517
